FAERS Safety Report 11694569 (Version 1)
Quarter: 2015Q4

REPORT INFORMATION
  Report Type: Spontaneous
  Country: DK (occurrence: DK)
  Receive Date: 20151103
  Receipt Date: 20151103
  Transmission Date: 20160304
  Serious: Yes (Other)
  Sender: FDA-Public Use
  Company Number: DK-TEVA-604634ACC

PATIENT
  Age: 66 Year
  Sex: Female
  Weight: 96 kg

DRUGS (1)
  1. ARIPIPRAZOLE. [Suspect]
     Active Substance: ARIPIPRAZOLE
     Indication: SCHIZOPHRENIA
     Dosage: 30 MILLIGRAM DAILY; 30 MG, QD
     Route: 048

REACTIONS (2)
  - Delusion [Not Recovered/Not Resolved]
  - Drug ineffective [Unknown]
